FAERS Safety Report 23811476 (Version 3)
Quarter: 2024Q3

REPORT INFORMATION
  Report Type: Report from Study
  Country: DO (occurrence: DO)
  Receive Date: 20240503
  Receipt Date: 20240716
  Transmission Date: 20241016
  Serious: Yes (Hospitalization, Other)
  Sender: ABBVIE
  Company Number: DO-JNJFOC-20240474810

PATIENT
  Age: 62 Year
  Sex: Male

DRUGS (1)
  1. IMBRUVICA [Suspect]
     Active Substance: IBRUTINIB
     Indication: Chronic lymphocytic leukaemia
     Route: 048
     Dates: start: 20230304

REACTIONS (5)
  - Eye oedema [Unknown]
  - Chronic lymphocytic leukaemia [Unknown]
  - Blindness unilateral [Unknown]
  - Pulmonary oedema [Unknown]
  - Glaucoma [Unknown]

NARRATIVE: CASE EVENT DATE: 20231201
